FAERS Safety Report 25335413 (Version 1)
Quarter: 2025Q2

REPORT INFORMATION
  Report Type: Spontaneous
  Country: US (occurrence: US)
  Receive Date: 20250520
  Receipt Date: 20250520
  Transmission Date: 20250716
  Serious: Yes (Other)
  Sender: AUROBINDO
  Company Number: US-AUROBINDO-AUR-APL-2025-025418

PATIENT
  Age: 57 Year
  Sex: Female

DRUGS (6)
  1. ZOLEDRONIC ACID [Suspect]
     Active Substance: ZOLEDRONIC ACID
     Indication: Endometrial cancer stage IV
     Route: 042
  2. BEVACIZUMAB [Concomitant]
     Active Substance: BEVACIZUMAB
     Indication: Endometrial cancer stage IV
     Route: 065
  3. CYCLOPHOSPHAMIDE [Concomitant]
     Active Substance: CYCLOPHOSPHAMIDE
     Indication: Endometrial cancer stage IV
     Route: 065
  4. CALCITONIN [Concomitant]
     Active Substance: CALCITONIN
     Indication: Endometrial cancer stage IV
     Dosage: 4 MILLIGRAM/KILOGRAM, TWO TIMES A DAY
     Route: 058
  5. CALCITONIN [Concomitant]
     Active Substance: CALCITONIN
     Dosage: 8 MILLIGRAM/KILOGRAM, EVERY TWO HOURS
     Route: 058
  6. CINACALCET [Concomitant]
     Active Substance: CINACALCET
     Indication: Blood parathyroid hormone
     Dosage: 30 MILLIGRAM, TWO TIMES A DAY
     Route: 048

REACTIONS (1)
  - Hypercalcaemia [Unknown]
